FAERS Safety Report 4759604-9 (Version None)
Quarter: 2005Q3

REPORT INFORMATION
  Report Type: 
  Country: None (occurrence: None)
  Receive Date: 20050901
  Receipt Date: 20050311
  Transmission Date: 20060218
  Serious: Yes (Hospitalization, Other)
  Sender: FDA-Public Use
  Company Number: US-MERCK-0503USA02616

PATIENT
  Age: 54 Year
  Sex: Male
  Weight: 175 kg

DRUGS (8)
  1. VIOXX [Suspect]
     Indication: ARTHRITIS
     Route: 048
     Dates: start: 20010101, end: 20050101
  2. ACCUPRIL [Concomitant]
     Route: 048
     Dates: start: 20000208, end: 20031201
  3. AMITRIPTYLIN [Concomitant]
     Route: 065
  4. DARVOCET-N 100 [Concomitant]
     Route: 048
     Dates: start: 20010209, end: 20040301
  5. IBUPROFEN [Concomitant]
     Route: 065
     Dates: start: 20010101
  6. IMDUR [Concomitant]
     Route: 065
  7. LOPRESSOR [Concomitant]
     Route: 065
  8. TOPROL-XL [Concomitant]
     Route: 065

REACTIONS (33)
  - ANAEMIA [None]
  - ARTHRALGIA [None]
  - ASTHENIA [None]
  - ATELECTASIS [None]
  - BLOOD GLUCOSE INCREASED [None]
  - CARDIAC DISORDER [None]
  - CEREBROVASCULAR ACCIDENT [None]
  - CORONARY ARTERY DISEASE [None]
  - CYST [None]
  - DIABETES MELLITUS INADEQUATE CONTROL [None]
  - DIABETIC MICROANGIOPATHY [None]
  - DYSPNOEA [None]
  - ESCHERICHIA INFECTION [None]
  - GASTROOESOPHAGEAL REFLUX DISEASE [None]
  - HAEMODIALYSIS [None]
  - HYPOAESTHESIA [None]
  - HYPOKALAEMIA [None]
  - HYPOTENSION [None]
  - IMPAIRED HEALING [None]
  - INSOMNIA [None]
  - JOINT EFFUSION [None]
  - LOSS OF CONSCIOUSNESS [None]
  - MYOCARDIAL INFARCTION [None]
  - OEDEMA PERIPHERAL [None]
  - POLLAKIURIA [None]
  - RENAL FAILURE [None]
  - RENAL FAILURE ACUTE [None]
  - RENAL FAILURE CHRONIC [None]
  - VENOUS INSUFFICIENCY [None]
  - WOUND DEHISCENCE [None]
  - WOUND INFECTION [None]
  - WOUND INFECTION PSEUDOMONAS [None]
  - WOUND INFECTION STAPHYLOCOCCAL [None]
